FAERS Safety Report 16905773 (Version 1)
Quarter: 2019Q4

REPORT INFORMATION
  Report Type: Report from Study
  Country: US (occurrence: US)
  Receive Date: 20191010
  Receipt Date: 20191010
  Transmission Date: 20200122
  Serious: Yes (Disabling)
  Sender: FDA-Public Use
  Company Number: US-ACTELION-A-US2019-190165

PATIENT
  Age: 67 Year
  Sex: Female

DRUGS (22)
  1. GLIPIZIDE. [Concomitant]
     Active Substance: GLIPIZIDE
     Dosage: 5 MG, QD
  2. VITAMIN D3 [Concomitant]
     Active Substance: CHOLECALCIFEROL
     Dosage: 1000 MG, QID
     Dates: start: 2018
  3. HYDRALAZINE [Concomitant]
     Active Substance: HYDRALAZINE HYDROCHLORIDE
     Dosage: 50 MG, QD
     Dates: start: 2016
  4. VITAMIN B12 [Concomitant]
     Active Substance: CYANOCOBALAMIN
     Dosage: 1000 MCG, QD
     Dates: start: 2018
  5. VITAMIN C [Concomitant]
     Active Substance: ASCORBIC ACID
     Dosage: 500 MG, QD
     Dates: start: 2018
  6. CITRACAL [Concomitant]
     Active Substance: CALCIUM CITRATE
     Dosage: UNK, QD
  7. PROBIOTIC [Concomitant]
     Active Substance: PROBIOTICS NOS
     Dosage: UNK
     Dates: start: 2016
  8. OPSUMIT [Suspect]
     Active Substance: MACITENTAN
     Dosage: 10 MG, QD
     Route: 048
  9. DILTIAZEM. [Concomitant]
     Active Substance: DILTIAZEM
     Dosage: 120 MG, QD
     Dates: start: 2016
  10. SILDENAFIL. [Concomitant]
     Active Substance: SILDENAFIL
     Dosage: 20 MG, TID
     Dates: start: 201903
  11. OPSUMIT [Suspect]
     Active Substance: MACITENTAN
     Indication: PULMONARY ARTERIAL HYPERTENSION
     Dosage: 10 MG, QD
     Route: 048
     Dates: start: 20190430
  12. GLUCOSAMINE + CHONDROITIN [Concomitant]
     Dosage: 500 MG/400 MG QD
  13. LASIX [Concomitant]
     Active Substance: FUROSEMIDE
     Dosage: 20 MG, QD
     Dates: start: 201904
  14. JANTOVEN [Concomitant]
     Active Substance: WARFARIN SODIUM
     Dosage: 7.5 MGS/M/W/F/S, 5MG T/TH
     Dates: start: 2016
  15. METOPROLOL. [Concomitant]
     Active Substance: METOPROLOL
     Dosage: 100 MG, QD
     Dates: start: 2016
  16. ZOMETA [Concomitant]
     Active Substance: ZOLEDRONIC ACID
     Dosage: UNK, Q1MONTH INFUSION
     Dates: start: 2017
  17. OPSUMIT [Suspect]
     Active Substance: MACITENTAN
     Dosage: 10 MG, QD
     Route: 048
     Dates: start: 20190501, end: 201905
  18. FISH OIL [Concomitant]
     Active Substance: FISH OIL
     Dosage: UNK, QD
  19. LETROZOLE. [Concomitant]
     Active Substance: LETROZOLE
     Dosage: 2.5 MG, QD
     Dates: start: 2017
  20. LOSARTAN. [Concomitant]
     Active Substance: LOSARTAN
     Dosage: 100 MG, QD
     Dates: start: 2016
  21. METFORMIN HCL [Concomitant]
     Active Substance: METFORMIN HYDROCHLORIDE
     Dosage: 1000 MG, QD
  22. GARLIC. [Concomitant]
     Active Substance: GARLIC
     Dosage: 3000U, QD

REACTIONS (13)
  - Poor quality sleep [Recovered/Resolved]
  - Rectal haemorrhage [Recovered/Resolved]
  - Visual impairment [Not Recovered/Not Resolved]
  - Glycosylated haemoglobin increased [Unknown]
  - Peripheral swelling [Recovering/Resolving]
  - Headache [Recovered/Resolved]
  - Abnormal weight gain [Not Recovered/Not Resolved]
  - Abdominal pain upper [Recovered/Resolved]
  - Weight increased [Not Recovered/Not Resolved]
  - Breast cancer metastatic [Unknown]
  - Condition aggravated [Not Recovered/Not Resolved]
  - Blood glucose abnormal [Not Recovered/Not Resolved]
  - Oxygen saturation decreased [Recovered/Resolved]

NARRATIVE: CASE EVENT DATE: 2019
